FAERS Safety Report 5692408-1 (Version None)
Quarter: 2008Q2

REPORT INFORMATION
  Report Type: 
  Country: None (occurrence: None)
  Receive Date: 20080402
  Receipt Date: 20070530
  Transmission Date: 20081010
  Serious: No
  Sender: FDA-Public Use
  Company Number: US-BAYER-US-2007-020046

PATIENT
  Age: 70 Year
  Sex: Male

DRUGS (2)
  1. LEUKINE [Suspect]
     Route: 058
     Dates: start: 20070501
  2. PROCRIT [Concomitant]

REACTIONS (1)
  - INJECTION SITE CELLULITIS [None]
